FAERS Safety Report 22331037 (Version 1)
Quarter: 2023Q2

REPORT INFORMATION
  Report Type: Spontaneous
  Country: CN (occurrence: CN)
  Receive Date: 20230517
  Receipt Date: 20230517
  Transmission Date: 20230722
  Serious: Yes (Death, Other)
  Sender: FDA-Public Use
  Company Number: CN-STRIDES ARCOLAB LIMITED-2023SP007127

PATIENT
  Age: 37 Year
  Sex: Female

DRUGS (8)
  1. ETOPOSIDE [Suspect]
     Active Substance: ETOPOSIDE
     Indication: Small cell lung cancer limited stage
     Dosage: UNK, CYCLICAL (FOUR CYCLES; FIRST LINE THERAPY)
     Route: 065
     Dates: start: 2019, end: 2019
  2. CISPLATIN [Suspect]
     Active Substance: CISPLATIN
     Indication: Small cell lung cancer limited stage
     Dosage: UNK, CYCLICAL (FOUR CYCLES; FIRST LINE THERAPY)
     Route: 065
     Dates: start: 2019, end: 2019
  3. CISPLATIN [Suspect]
     Active Substance: CISPLATIN
     Dosage: UNK, CYCLICAL (TWO CYCLE; THIRD LINE THERAPY)
     Route: 065
     Dates: start: 20200409, end: 20200511
  4. IRINOTECAN [Suspect]
     Active Substance: IRINOTECAN
     Indication: Small cell lung cancer limited stage
     Dosage: UNK, CYCLICAL (FOUR CYCLES; SECOND-LINE THERAPY)
     Route: 065
     Dates: start: 201911, end: 202001
  5. CYCLOPHOSPHAMIDE [Suspect]
     Active Substance: CYCLOPHOSPHAMIDE
     Indication: Small cell lung cancer limited stage
     Dosage: UNK, CYCLICAL (TWO CYCLES; THIRD LINE THERAPY)
     Route: 065
     Dates: start: 20200409, end: 20200511
  6. DOXORUBICIN [Suspect]
     Active Substance: DOXORUBICIN
     Indication: Small cell lung cancer limited stage
     Dosage: UNK, CYCLICAL (TWO CYCLES; THIRD LINE THERAPY)
     Route: 065
     Dates: start: 20200409, end: 20200511
  7. CATEQUENTINIB [Suspect]
     Active Substance: CATEQUENTINIB
     Indication: Small cell lung cancer limited stage
     Dosage: 10 MILLIGRAM PER DAY (2 WEEKS ON AND 1 WEEK OFF)
     Route: 048
     Dates: start: 20200618, end: 20201118
  8. CATEQUENTINIB [Suspect]
     Active Substance: CATEQUENTINIB
     Dosage: 8 MILLIGRAM PER DAY
     Route: 048
     Dates: start: 20201118

REACTIONS (3)
  - Death [Fatal]
  - Small cell lung cancer [Unknown]
  - Drug ineffective [Unknown]

NARRATIVE: CASE EVENT DATE: 20190101
